FAERS Safety Report 9530035 (Version 1)
Quarter: 2013Q3

REPORT INFORMATION
  Report Type: Report from Study
  Country: FR (occurrence: FR)
  Receive Date: 20130917
  Receipt Date: 20130917
  Transmission Date: 20140515
  Serious: Yes (Death, Other)
  Sender: FDA-Public Use
  Company Number: FR-BAYER-2013-112281

PATIENT
  Sex: 0

DRUGS (2)
  1. ASPIRIN [Suspect]
     Indication: ANTICOAGULANT THERAPY
  2. FLUINDIONE [Suspect]
     Indication: ANTICOAGULANT THERAPY

REACTIONS (2)
  - Epistaxis [None]
  - Asphyxia [Fatal]
